FAERS Safety Report 9294172 (Version 1)
Quarter: 2013Q1

REPORT INFORMATION
  Report Type: Spontaneous
  Country: US (occurrence: None)
  Receive Date: 20121218
  Receipt Date: 20121218
  Transmission Date: 20140127
  Serious: Yes (Other)
  Sender: FDA-Public Use
  Company Number: PHEH2011US012831

PATIENT
  Age: 38 Year
  Sex: Female
  Weight: 43 kg

DRUGS (2)
  1. FEMARA [Suspect]
     Indication: OVARIAN CANCER STAGE III
     Route: 048
  2. TAXOL + CARBOPLATN (CARBOPLATIN, PACLITAXEL) [Concomitant]

REACTIONS (2)
  - Neoplasm [None]
  - Malignant neoplasm progression [None]
